FAERS Safety Report 4623887-6 (Version None)
Quarter: 2005Q1

REPORT INFORMATION
  Report Type: 
  Country: None (occurrence: None)
  Receive Date: 20050331
  Receipt Date: 20050120
  Transmission Date: 20050727
  Serious: Yes (Hospitalization)
  Sender: FDA-Public Use
  Company Number: FR-ROCHE-392974

PATIENT
  Age: 39 Year
  Sex: Male
  Weight: 60 kg

DRUGS (3)
  1. PEG-INTERFERON ALFA 2A (RO 25-8310) [Suspect]
     Route: 058
     Dates: start: 20040204, end: 20040421
  2. PEG-INTERFERON ALFA 2A (RO 25-8310) [Suspect]
     Route: 058
     Dates: start: 20040428
  3. RIBAVIRIN [Suspect]
     Route: 048
     Dates: start: 20040204

REACTIONS (1)
  - TOOTH ABSCESS [None]
